FAERS Safety Report 8156956 (Version 5)
Quarter: 2013Q1

REPORT INFORMATION
  Report Type: Report from Study
  Country: BR (occurrence: BR)
  Receive Date: 20110926
  Receipt Date: 20130314
  Transmission Date: 20140127
  Serious: Yes (Death, Life-Threatening, Hospitalization)
  Sender: FDA-Public Use
  Company Number: PHHO2011BR12604

PATIENT
  Age: 16 Year
  Sex: Female
  Weight: 26 kg

DRUGS (6)
  1. PLACEBO [Suspect]
     Indication: JUVENILE IDIOPATHIC ARTHRITIS
     Dosage: UNK
     Route: 048
     Dates: start: 20100628, end: 20110627
  2. METHOTREXATE [Suspect]
     Dosage: 15 MG, WEEKLY
     Dates: start: 2008, end: 20110720
  3. METICORTEN [Concomitant]
     Indication: JUVENILE IDIOPATHIC ARTHRITIS
     Dosage: 5 MG, UNK
     Route: 048
     Dates: start: 20101118, end: 20110719
  4. METICORTEN [Concomitant]
     Dosage: UNK
     Route: 048
     Dates: start: 20110720
  5. CALCIUM CARBONATE [Concomitant]
     Indication: OSTEOPENIA
     Dosage: 500 MG, BID
     Dates: start: 2008, end: 20110720
  6. ALENDRONATE SODIUM [Concomitant]
     Indication: OSTEOPENIA
     Dosage: 35 MG, WEEKLY
     Dates: start: 20100923, end: 20110720

REACTIONS (3)
  - Histiocytosis haematophagic [Fatal]
  - Urosepsis [Fatal]
  - Nephrolithiasis [Unknown]
